FAERS Safety Report 9436686 (Version 1)
Quarter: 2013Q3

REPORT INFORMATION
  Report Type: Spontaneous
  Country: US (occurrence: US)
  Receive Date: 20130802
  Receipt Date: 20130802
  Transmission Date: 20140515
  Serious: Yes (Hospitalization)
  Sender: FDA-Public Use
  Company Number: US-BAYER-2013-091045

PATIENT
  Age: 45 Year
  Sex: Female

DRUGS (7)
  1. YAZ [Suspect]
  2. CALCIUM CARBONATE [Concomitant]
  3. ACIDOPHILUS [Concomitant]
  4. XYZAL [Concomitant]
  5. PREDNISONE [Concomitant]
  6. VICODIN [Concomitant]
     Indication: PAIN
  7. TESSALON PERLES [Concomitant]
     Indication: COUGH

REACTIONS (2)
  - Pulmonary embolism [Recovered/Resolved]
  - Deep vein thrombosis [None]
